FAERS Safety Report 14102243 (Version 2)
Quarter: 2017Q4

REPORT INFORMATION
  Report Type: Spontaneous
  Country: LV (occurrence: LV)
  Receive Date: 20171018
  Receipt Date: 20171107
  Transmission Date: 20180321
  Serious: Yes (Death)
  Sender: FDA-Public Use
  Company Number: LV-PFIZER INC-2017442829

PATIENT
  Sex: Male

DRUGS (3)
  1. PAZOPANIB [Concomitant]
     Active Substance: PAZOPANIB
     Indication: RENAL CANCER METASTATIC
     Dosage: 600 MG, ONCE A DAY
     Route: 048
     Dates: start: 20110513
  2. SUNITINIB MALATE. [Suspect]
     Active Substance: SUNITINIB MALATE
     Indication: RENAL CANCER METASTATIC
     Dosage: 50 MG, CYCLIC (DAILY 4/2 REGIME)
     Route: 048
     Dates: start: 20150120, end: 20151220
  3. CARDACE [Concomitant]
     Active Substance: RAMIPRIL
     Indication: TAKAYASU^S ARTERITIS
     Dosage: UNK

REACTIONS (5)
  - Abdominal rigidity [Recovered/Resolved]
  - Neoplasm progression [Fatal]
  - Dysgeusia [Recovered/Resolved]
  - Stomatitis [Recovered/Resolved]
  - Diarrhoea [Recovered/Resolved]

NARRATIVE: CASE EVENT DATE: 2015
